FAERS Safety Report 9787095 (Version 2)
Quarter: 2016Q3

REPORT INFORMATION
  Report Type: Report from Study
  Country: GB (occurrence: GB)
  Receive Date: 20131228
  Receipt Date: 20160907
  Transmission Date: 20161109
  Serious: Yes (Other)
  Sender: FDA-Public Use
  Company Number: GB-ROCHE-1326622

PATIENT
  Age: 81 Year
  Sex: Female

DRUGS (18)
  1. METOCLOPRAMIDE. [Concomitant]
     Active Substance: METOCLOPRAMIDE
  2. DEXAMETHASONE. [Concomitant]
     Active Substance: DEXAMETHASONE
  3. SIMVASTATIN. [Concomitant]
     Active Substance: SIMVASTATIN
  4. LEVOMEPROMAZINE [Concomitant]
     Active Substance: LEVOMEPROMAZINE
  5. CAPECITABINE. [Suspect]
     Active Substance: CAPECITABINE
     Indication: PANCREATIC CARCINOMA
     Dosage: ON DAYS 1-21
     Route: 048
  6. GEMCITABINE HYDROCHLORIDE. [Suspect]
     Active Substance: GEMCITABINE HYDROCHLORIDE
     Indication: PANCREATIC CARCINOMA
     Dosage: OVER 30 MINUTES ON DAYS 1, 8, AND 15
     Route: 042
  7. PARACETAMOL [Concomitant]
     Active Substance: ACETAMINOPHEN
  8. FELODIPINE. [Concomitant]
     Active Substance: FELODIPINE
  9. GLICLAZIDE [Concomitant]
     Active Substance: GLICLAZIDE
  10. SARGRAMOSTIM [Suspect]
     Active Substance: SARGRAMOSTIM
     Indication: PANCREATIC CARCINOMA
     Route: 023
  11. FENTANYL. [Concomitant]
     Active Substance: FENTANYL
  12. REPAGLINIDE. [Concomitant]
     Active Substance: REPAGLINIDE
  13. LISINOPRIL. [Concomitant]
     Active Substance: LISINOPRIL
  14. ONDANSETRON [Concomitant]
     Active Substance: ONDANSETRON
  15. ATENOLOL. [Concomitant]
     Active Substance: ATENOLOL
  16. MOVICOL [Concomitant]
     Active Substance: POLYETHYLENE GLYCOL 3350\POTASSIUM CHLORIDE\SODIUM BICARBONATE\SODIUM CHLORIDE
  17. LANSOPRAZOLE. [Concomitant]
     Active Substance: LANSOPRAZOLE
  18. FLUOXETINE HYDROCHLORIDE. [Concomitant]
     Active Substance: FLUOXETINE HYDROCHLORIDE

REACTIONS (3)
  - Anxiety [Recovered/Resolved with Sequelae]
  - Mood altered [Recovered/Resolved with Sequelae]
  - Depression [Recovered/Resolved with Sequelae]

NARRATIVE: CASE EVENT DATE: 20100419
